FAERS Safety Report 7506080-9 (Version None)
Quarter: 2011Q2

REPORT INFORMATION
  Report Type: 
  Country: None (occurrence: None)
  Receive Date: 20110526
  Receipt Date: 20110516
  Transmission Date: 20111010
  Serious: Yes (Other)
  Sender: FDA-Public Use
  Company Number: JP-PFIZER INC-2011112955

PATIENT
  Age: 69 Year
  Sex: Male
  Weight: 61 kg

DRUGS (4)
  1. CAMPTOSAR [Suspect]
     Indication: COLORECTAL CANCER
     Dosage: 200 MG/BODY (119 MG/M2)
     Route: 041
     Dates: start: 20110125, end: 20110308
  2. PANITUMUMAB [Concomitant]
     Indication: COLORECTAL CANCER
     Dosage: 380 MG, UNK
     Route: 041
     Dates: start: 20110125, end: 20110308
  3. CALCIUM LEVOFOLINATE [Concomitant]
     Indication: COLORECTAL CANCER
     Dosage: 340 MG/BODY (202.4 MG/M2)
     Route: 041
     Dates: start: 20110125, end: 20110308
  4. FLUOROURACIL [Concomitant]
     Indication: COLORECTAL CANCER
     Dosage: 4000 MG/BODY/D1-2 (2381 MG/M2/D1-2)
     Route: 041
     Dates: start: 20110125, end: 20110308

REACTIONS (1)
  - HEPATIC ENCEPHALOPATHY [None]
